FAERS Safety Report 10099742 (Version 2)
Quarter: 2014Q2

REPORT INFORMATION
  Report Type: Spontaneous
  Country: US (occurrence: US)
  Receive Date: 20140423
  Receipt Date: 20140423
  Transmission Date: 20141212
  Serious: No
  Sender: FDA-Public Use
  Company Number: US-GILEAD-2013-0071183

PATIENT
  Sex: Female

DRUGS (3)
  1. LETAIRIS [Suspect]
     Indication: PULMONARY HYPERTENSION
     Dosage: 10 MG, QD
     Route: 048
     Dates: start: 20100322
  2. LETAIRIS [Suspect]
     Indication: MITRAL VALVE STENOSIS
  3. LETAIRIS [Suspect]
     Indication: RHEUMATIC HEART DISEASE

REACTIONS (1)
  - Migraine [Unknown]
